FAERS Safety Report 5207149-4 (Version None)
Quarter: 2007Q1

REPORT INFORMATION
  Report Type: 
  Country: None (occurrence: None)
  Receive Date: 20070112
  Receipt Date: 20070109
  Transmission Date: 20070707
  Serious: Yes (Life-Threatening)
  Sender: FDA-Public Use
  Company Number: DE-ROCHE-477391

PATIENT
  Age: 47 Year
  Sex: Male

DRUGS (2)
  1. DACLIZUMAB [Suspect]
     Route: 065
     Dates: start: 20061115
  2. TACROLIMUS [Suspect]
     Route: 048
     Dates: start: 20061115

REACTIONS (1)
  - HEPATIC ENZYME INCREASED [None]
